FAERS Safety Report 4282711-4 (Version None)
Quarter: 2004Q1

REPORT INFORMATION
  Report Type: 
  Country: None (occurrence: None)
  Receive Date: 20040130
  Receipt Date: 20030326
  Transmission Date: 20041129
  Serious: No
  Sender: FDA-Public Use
  Company Number: US-BRISTOL-MYERS SQUIBB COMPANY-12222642

PATIENT
  Age: 30 Year
  Sex: Female

DRUGS (3)
  1. SERZONE [Suspect]
     Indication: ANXIETY DISORDER
     Route: 048
  2. SERZONE [Suspect]
     Indication: DEPRESSION
     Route: 048
  3. ZOLOFT [Suspect]

REACTIONS (1)
  - TARDIVE DYSKINESIA [None]
